FAERS Safety Report 4867034-4 (Version None)
Quarter: 2005Q4

REPORT INFORMATION
  Report Type: 
  Country: None (occurrence: None)
  Receive Date: 20051222
  Receipt Date: 20051213
  Transmission Date: 20060501
  Serious: Yes (Other)
  Sender: FDA-Public Use
  Company Number: ST-2005-008770

PATIENT
  Age: 77 Year
  Sex: Male

DRUGS (7)
  1. OLMETEC [Suspect]
     Indication: HYPERTENSION
     Dates: end: 20051212
  2. CARDENALIN [Suspect]
     Indication: HYPERTENSION
  3. ACTOS [Concomitant]
  4. AMARYL [Concomitant]
  5. ALLOPURINOL [Concomitant]
  6. BIOFERMIN [Concomitant]
  7. CYANOCOBALAMIN [Concomitant]

REACTIONS (3)
  - AMNESIA [None]
  - DEPRESSED LEVEL OF CONSCIOUSNESS [None]
  - DISORIENTATION [None]
